FAERS Safety Report 9412894 (Version 1)
Quarter: 2013Q3

REPORT INFORMATION
  Report Type: Spontaneous
  Country: GB (occurrence: GB)
  Receive Date: 20130722
  Receipt Date: 20130722
  Transmission Date: 20140515
  Serious: Yes (Other)
  Sender: FDA-Public Use
  Company Number: GB-TEVA-419275ISR

PATIENT
  Age: 76 Year
  Sex: Male
  Weight: 90.4 kg

DRUGS (1)
  1. NAPROXEN [Suspect]

REACTIONS (2)
  - Skin lesion [Recovered/Resolved]
  - Skin ulcer [Recovered/Resolved]
